FAERS Safety Report 25577384 (Version 1)
Quarter: 2025Q3

REPORT INFORMATION
  Report Type: Spontaneous
  Country: CA (occurrence: CA)
  Receive Date: 20250718
  Receipt Date: 20250718
  Transmission Date: 20251020
  Serious: Yes (Death, Hospitalization, Other)
  Sender: MYLAN
  Company Number: CA-MYLANLABS-2025M1060202

PATIENT
  Sex: Male
  Weight: 65 kg

DRUGS (1)
  1. ATORVASTATIN [Suspect]
     Active Substance: ATORVASTATIN
     Indication: Product used for unknown indication

REACTIONS (7)
  - Acute kidney injury [Fatal]
  - Blood bilirubin increased [Fatal]
  - Blood creatine phosphokinase increased [Fatal]
  - Gastrointestinal disorder [Fatal]
  - Hepatobiliary disease [Fatal]
  - Hypotension [Fatal]
  - Transaminases increased [Fatal]
